FAERS Safety Report 8537992 (Version 3)
Quarter: 2013Q1

REPORT INFORMATION
  Report Type: Report from Study
  Country: IL (occurrence: IL)
  Receive Date: 20120501
  Receipt Date: 20130211
  Transmission Date: 20140127
  Serious: Yes (Hospitalization, Disabling)
  Sender: FDA-Public Use
  Company Number: IL-ROCHE-1044899

PATIENT
  Sex: Female

DRUGS (5)
  1. PEG-INTERFERON ALFA 2A [Suspect]
     Indication: CHRONIC HEPATITIS C
     Dosage: DATE OF LAST DOSE PRIOR TO SAE: 20/FEB/2012
     Route: 065
     Dates: start: 20110327, end: 20120220
  2. RIBAVIRIN [Suspect]
     Indication: CHRONIC HEPATITIS C
     Dosage: DATE OF LAST DOSE PRIOR TO SAE: 20/FEB/2012
     Route: 065
     Dates: start: 20110327, end: 20120220
  3. ELTROXIN [Concomitant]
     Indication: HYPOTHYROIDISM
     Route: 048
     Dates: start: 20110915
  4. BRIMONIDINE [Concomitant]
     Indication: GLAUCOMA
     Dosage: PUFF
     Route: 031
     Dates: start: 20110901
  5. BETACORTEN [Concomitant]
     Indication: DRY SKIN
     Dosage: DAILY
     Route: 061
     Dates: start: 20111211

REACTIONS (2)
  - Cryoglobulinaemia [Recovered/Resolved]
  - Neuropathy peripheral [Recovered/Resolved with Sequelae]
